FAERS Safety Report 10054907 (Version 2)
Quarter: 2014Q2

REPORT INFORMATION
  Report Type: Spontaneous
  Country: RU (occurrence: RU)
  Receive Date: 20140402
  Receipt Date: 20140402
  Transmission Date: 20141212
  Serious: Yes (Death, Hospitalization, Other)
  Sender: FDA-Public Use
  Company Number: PHHY2014RU037856

PATIENT
  Age: 21 Year
  Sex: Female
  Weight: 60 kg

DRUGS (4)
  1. GILENYA [Suspect]
     Indication: RELAPSING-REMITTING MULTIPLE SCLEROSIS
     Dosage: 0.5 MG, QD
     Route: 048
     Dates: start: 201402, end: 201403
  2. OCTAGAM [Concomitant]
     Route: 042
  3. METHYLPREDNISOLONE [Concomitant]
     Dosage: 1000 MG, QD
     Route: 042
  4. GAMUNEX [Concomitant]
     Dosage: 10 %, UNK
     Route: 042

REACTIONS (2)
  - Multiple sclerosis relapse [Fatal]
  - Lymphopenia [Unknown]
